FAERS Safety Report 22291724 (Version 1)
Quarter: 2023Q2

REPORT INFORMATION
  Report Type: Spontaneous
  Country: US (occurrence: None)
  Receive Date: 20230505
  Receipt Date: 20230505
  Transmission Date: 20230722
  Serious: No
  Sender: FDA-Public Use
  Company Number: None

PATIENT
  Age: 32 Day
  Sex: Female
  Weight: 69.75 kg

DRUGS (1)
  1. ACETAMINOPHEN\HYDROCODONE [Suspect]
     Active Substance: ACETAMINOPHEN\HYDROCODONE
     Indication: Pelvic pain
     Dosage: 1 TABLET EVERY 12 HOURS ORAL?
     Route: 048
     Dates: start: 20230429

REACTIONS (2)
  - Therapeutic product effect incomplete [None]
  - Suspected product quality issue [None]

NARRATIVE: CASE EVENT DATE: 20230502
